FAERS Safety Report 15768378 (Version 1)
Quarter: 2018Q4

REPORT INFORMATION
  Report Type: Report from Study
  Country: US (occurrence: US)
  Receive Date: 20181227
  Receipt Date: 20181227
  Transmission Date: 20190205
  Serious: Yes (Hospitalization)
  Sender: FDA-Public Use
  Company Number: US-EXELIXIS-CABO-18017846

PATIENT
  Sex: Female

DRUGS (1)
  1. CABOMETYX [Suspect]
     Active Substance: CABOZANTINIB S-MALATE
     Indication: RENAL CANCER
     Dosage: 60 MG, QD
     Route: 048
     Dates: start: 20161231

REACTIONS (12)
  - Mucosal inflammation [Unknown]
  - Vomiting [Unknown]
  - Sleep disorder [Unknown]
  - Back pain [Unknown]
  - Musculoskeletal stiffness [Unknown]
  - Headache [Unknown]
  - Diarrhoea [Unknown]
  - Nausea [Unknown]
  - Metastases to central nervous system [Unknown]
  - Pulmonary embolism [Unknown]
  - Gastrointestinal motility disorder [Unknown]
  - Fatigue [Unknown]
